FAERS Safety Report 5588764-5 (Version None)
Quarter: 2008Q1

REPORT INFORMATION
  Report Type: 
  Country: None (occurrence: None)
  Receive Date: 20080111
  Receipt Date: 20080103
  Transmission Date: 20080703
  Serious: Yes (Other)
  Sender: FDA-Public Use
  Company Number: B0423003A

PATIENT
  Age: 28 Year
  Sex: Female

DRUGS (8)
  1. SEROXAT [Suspect]
     Route: 065
     Dates: start: 20000501, end: 20070301
  2. PAROXETINE HYDROCHLORIDE [Suspect]
     Route: 048
     Dates: start: 20041117
  3. DIAZEPAM [Concomitant]
     Route: 065
     Dates: start: 20041025
  4. COCODAMOL [Concomitant]
     Route: 065
  5. DOTHIEPIN HYDROCHLORIDE [Concomitant]
     Route: 065
     Dates: start: 19991123
  6. EFFEXOR [Concomitant]
     Route: 065
     Dates: start: 20000307
  7. AMITRIPTYLINE HCL [Concomitant]
     Route: 065
     Dates: start: 20001010
  8. PROZAC [Concomitant]
     Route: 065
     Dates: start: 19990325

REACTIONS (18)
  - ABDOMINAL PAIN [None]
  - ANGER [None]
  - ANXIETY [None]
  - CONFUSIONAL STATE [None]
  - DEPRESSION [None]
  - DIZZINESS [None]
  - EMOTIONAL DISORDER [None]
  - HEADACHE [None]
  - HYPERHIDROSIS [None]
  - IRRITABLE BOWEL SYNDROME [None]
  - LETHARGY [None]
  - MEMORY IMPAIRMENT [None]
  - NAUSEA [None]
  - NIGHTMARE [None]
  - PARAESTHESIA [None]
  - SUICIDAL IDEATION [None]
  - TEARFULNESS [None]
  - WITHDRAWAL SYNDROME [None]
